FAERS Safety Report 9279193 (Version 1)
Quarter: 2013Q2

REPORT INFORMATION
  Report Type: Spontaneous
  Country: US (occurrence: US)
  Receive Date: 20130508
  Receipt Date: 20130508
  Transmission Date: 20140414
  Serious: No
  Sender: FDA-Public Use
  Company Number: US-TARO-2013P1001761

PATIENT
  Age: 5 Year
  Sex: Male

DRUGS (2)
  1. MOMETASONE FUROATE [Suspect]
     Route: 045
     Dates: start: 20121224, end: 20130130
  2. SINGULAIR [Concomitant]

REACTIONS (3)
  - Nasal discomfort [Recovered/Resolved]
  - Drug administered to patient of inappropriate age [Recovered/Resolved]
  - Incorrect route of drug administration [Recovered/Resolved]
